FAERS Safety Report 8405293-1 (Version None)
Quarter: 2012Q2

REPORT INFORMATION
  Report Type: 
  Country: None (occurrence: None)
  Receive Date: 20120603
  Receipt Date: 20120522
  Transmission Date: 20120825
  Serious: Yes (Disabling)
  Sender: FDA-Public Use
  Company Number: GB-AMGEN-GBRCT2012032941

PATIENT
  Age: 8 Year
  Sex: Female
  Weight: 30.1 kg

DRUGS (3)
  1. ETANERCEPT [Suspect]
     Indication: PRODUCT USED FOR UNKNOWN INDICATION
     Dosage: 6.4 MG, 2 TIMES/WK
     Route: 058
     Dates: start: 20070716, end: 20110111
  2. METHYLPREDNISOLONE [Concomitant]
     Dosage: 30 X 3 KG
     Route: 042
     Dates: start: 20110701
  3. ANAKINRA [Concomitant]
     Dosage: 50 MG, 1X/DAY
     Route: 058
     Dates: start: 20110101, end: 20110701

REACTIONS (1)
  - JUVENILE ARTHRITIS [None]
